FAERS Safety Report 5357948-3 (Version None)
Quarter: 2007Q2

REPORT INFORMATION
  Report Type: 
  Country: None (occurrence: None)
  Receive Date: 20070530
  Receipt Date: 20070306
  Transmission Date: 20071010
  Serious: Yes (Hospitalization, Other)
  Sender: FDA-Public Use
  Company Number: US200701000587

PATIENT
  Age: 46 Year
  Sex: Male
  Weight: 95.2 kg

DRUGS (3)
  1. ZYPREXA [Suspect]
     Dosage: 10 MG
     Dates: start: 20030101, end: 20050101
  2. ZYPREXA [Suspect]
     Dosage: 10 MG
     Dates: start: 20020101
  3. PROZAC [Concomitant]

REACTIONS (5)
  - DIABETES MELLITUS [None]
  - DIABETIC COMA [None]
  - DIABETIC KETOACIDOSIS [None]
  - OBESITY [None]
  - VISION BLURRED [None]
